FAERS Safety Report 4290734-4 (Version None)
Quarter: 2004Q1

REPORT INFORMATION
  Report Type: 
  Country: None (occurrence: None)
  Receive Date: 20040209
  Receipt Date: 20040130
  Transmission Date: 20041129
  Serious: Yes (Disabling)
  Sender: FDA-Public Use
  Company Number: 2003035798

PATIENT
  Age: 46 Year
  Sex: Female
  Weight: 55 kg

DRUGS (3)
  1. NEURONTIN [Suspect]
     Indication: EPILEPSY
     Dosage: 1800 MG, ORAL
     Route: 048
     Dates: start: 20021112
  2. NEURONTIN [Suspect]
     Indication: MIGRAINE
     Dosage: 1800 MG, ORAL
     Route: 048
     Dates: start: 20021112
  3. OXCARBAZEPINE (OXCARBAZEPINE) [Concomitant]

REACTIONS (3)
  - ARTHROPATHY [None]
  - CONDITION AGGRAVATED [None]
  - PSORIASIS [None]
